FAERS Safety Report 12169069 (Version 1)
Quarter: 2016Q1

REPORT INFORMATION
  Report Type: Spontaneous
  Country: GB (occurrence: GB)
  Receive Date: 20160310
  Receipt Date: 20160310
  Transmission Date: 20160526
  Serious: Yes (Other)
  Sender: FDA-Public Use
  Company Number: GB-BIOGEN-2016BI00197494

PATIENT
  Sex: Female

DRUGS (1)
  1. TECFIDERA [Suspect]
     Active Substance: DIMETHYL FUMARATE
     Indication: EXPOSURE VIA FATHER
     Dates: start: 2015

REACTIONS (2)
  - Abortion spontaneous [Unknown]
  - Exposure via father [Recovered/Resolved]

NARRATIVE: CASE EVENT DATE: 201505
